FAERS Safety Report 22371861 (Version 1)
Quarter: 2023Q2

REPORT INFORMATION
  Report Type: Spontaneous
  Country: US (occurrence: US)
  Receive Date: 20230526
  Receipt Date: 20230526
  Transmission Date: 20230721
  Serious: No
  Sender: FDA-Public Use
  Company Number: US-PFIZER INC-PV202300091139

PATIENT
  Age: 63 Year
  Sex: Female

DRUGS (1)
  1. CARBOCAINE [Suspect]
     Active Substance: MEPIVACAINE HYDROCHLORIDE
     Indication: Anaesthesia
     Dosage: UNK

REACTIONS (3)
  - Incorrect dose administered [Unknown]
  - Headache [Unknown]
  - Oral pain [Unknown]
